FAERS Safety Report 26099731 (Version 1)
Quarter: 2025Q4

REPORT INFORMATION
  Report Type: Spontaneous
  Country: RU (occurrence: RU)
  Receive Date: 20251128
  Receipt Date: 20251128
  Transmission Date: 20260117
  Serious: Yes (Other)
  Sender: ALKEM
  Company Number: RU-ALKEM LABORATORIES LIMITED-RU-ALKEM-2025-11221

PATIENT
  Age: 20 Year
  Sex: Male

DRUGS (1)
  1. OLANZAPINE [Suspect]
     Active Substance: OLANZAPINE
     Indication: Schizophrenia
     Dosage: 10 MILLIGRAM, QD
     Route: 048

REACTIONS (1)
  - Rhabdomyolysis [Recovered/Resolved]
